FAERS Safety Report 8443734-4 (Version None)
Quarter: 2012Q2

REPORT INFORMATION
  Report Type: 
  Country: None (occurrence: None)
  Receive Date: 20120618
  Receipt Date: 20120611
  Transmission Date: 20120825
  Serious: Yes (Hospitalization, Congenital Anomaly, Other)
  Sender: FDA-Public Use
  Company Number: DE-ELI_LILLY_AND_COMPANY-DE201206003010

PATIENT
  Sex: Female

DRUGS (10)
  1. VENLAFAXINE [Concomitant]
     Route: 064
  2. DIMENHYDRINATE [Concomitant]
     Route: 064
  3. DIAZEPAM [Concomitant]
     Route: 064
  4. DIAZEPAM [Concomitant]
     Route: 064
  5. MIRTAZAPINE [Concomitant]
     Route: 064
  6. MIRTAZAPINE [Concomitant]
     Route: 064
  7. DIMENHYDRINATE [Concomitant]
     Route: 064
  8. VENLAFAXINE [Concomitant]
     Route: 064
  9. ZYPREXA [Suspect]
     Route: 064
  10. ZYPREXA [Suspect]
     Route: 064

REACTIONS (3)
  - PREMATURE BABY [None]
  - ATRIAL SEPTAL DEFECT [None]
  - FOETAL EXPOSURE DURING PREGNANCY [None]
